FAERS Safety Report 9335590 (Version 6)
Quarter: 2013Q3

REPORT INFORMATION
  Report Type: Report from Study
  Country: US (occurrence: US)
  Receive Date: 20130607
  Receipt Date: 20130821
  Transmission Date: 20140515
  Serious: Yes (Life-Threatening, Hospitalization)
  Sender: FDA-Public Use
  Company Number: US-MERCK-1305USA017477

PATIENT
  Age: 69 Year
  Sex: Male
  Weight: 83.6 kg

DRUGS (4)
  1. VORINOSTAT [Suspect]
     Indication: HODGKIN^S DISEASE
     Dosage: 400 MG, PO QD ON DAYS 1-14
     Route: 048
     Dates: start: 20130508, end: 2013
  2. VORINOSTAT [Suspect]
     Dosage: 400 MG, PO QD ON DAYS 1-14
     Route: 048
     Dates: start: 20130703
  3. ALISERTIB [Suspect]
     Indication: HODGKIN^S DISEASE
     Dosage: 30 MG, PO BID ON DAYS 1-7
     Route: 048
     Dates: start: 20130508, end: 2013
  4. ALISERTIB [Suspect]
     Dosage: 30 MG, PO BID ON DAYS 1-7
     Route: 048
     Dates: start: 20130703

REACTIONS (4)
  - Lymphocyte count decreased [Recovered/Resolved]
  - Febrile neutropenia [Recovered/Resolved]
  - Pyrexia [Not Recovered/Not Resolved]
  - Lung infection [Not Recovered/Not Resolved]
